FAERS Safety Report 9424376 (Version 1)
Quarter: 2013Q3

REPORT INFORMATION
  Report Type: Spontaneous
  Country: US (occurrence: US)
  Receive Date: 20130729
  Receipt Date: 20130729
  Transmission Date: 20140515
  Serious: No
  Sender: FDA-Public Use
  Company Number: US-BAYER-2013-091151

PATIENT
  Age: 58 Year
  Sex: Male

DRUGS (9)
  1. CIPRO [Suspect]
  2. LYRICA [Concomitant]
     Dosage: 75 MG, UNK
  3. LYRICA [Concomitant]
     Dosage: 150 MG, UNK
  4. KLONOPIN [Concomitant]
     Indication: MUSCLE SPASMS
  5. AMITRIPTYLINE HYDROCHLORIDE [Concomitant]
     Dosage: 50 MG, QD
     Route: 048
  6. LOSARTAN [Concomitant]
  7. SLEEP AID [Concomitant]
  8. ASPIRIN [Concomitant]
  9. VITAMIN D [Concomitant]
     Route: 048

REACTIONS (1)
  - Drug hypersensitivity [None]
